FAERS Safety Report 15172991 (Version 1)
Quarter: 2018Q3

REPORT INFORMATION
  Report Type: Spontaneous
  Country: GB (occurrence: GB)
  Receive Date: 20180720
  Receipt Date: 20180720
  Transmission Date: 20181010
  Serious: Yes (Other)
  Sender: FDA-Public Use
  Company Number: GB-ASTRAZENECA-2018SE90343

PATIENT
  Age: 18 Year
  Sex: Male

DRUGS (1)
  1. ZOMIG [Suspect]
     Active Substance: ZOLMITRIPTAN
     Indication: MIGRAINE
     Route: 045
     Dates: start: 20180630, end: 20180630

REACTIONS (2)
  - Paraesthesia [Recovered/Resolved]
  - Malaise [Recovered/Resolved with Sequelae]
